FAERS Safety Report 8580535-0 (Version None)
Quarter: 2012Q3

REPORT INFORMATION
  Report Type: 
  Country: None (occurrence: None)
  Receive Date: 20120808
  Receipt Date: 20120730
  Transmission Date: 20120928
  Serious: No
  Sender: FDA-Public Use
  Company Number: US-ASTRAZENECA-2012SE53746

PATIENT
  Age: 43 Year
  Sex: Female

DRUGS (5)
  1. AG PRO MULTIVITAMINS [Concomitant]
  2. SEROQUEL [Suspect]
     Indication: BIPOLAR I DISORDER
     Route: 048
     Dates: start: 20020101
  3. TRAZODONE HYDROCHLORIDE [Concomitant]
  4. VALIUM [Concomitant]
  5. SEROQUEL [Suspect]
     Indication: SLEEP DISORDER
     Route: 048
     Dates: start: 20020101

REACTIONS (2)
  - INSOMNIA [None]
  - DRUG DOSE OMISSION [None]
